FAERS Safety Report 11233703 (Version 1)
Quarter: 2015Q3

REPORT INFORMATION
  Report Type: Spontaneous
  Country: US (occurrence: US)
  Receive Date: 20150702
  Receipt Date: 20150702
  Transmission Date: 20151125
  Serious: Yes (Hospitalization)
  Sender: FDA-Public Use
  Company Number: US-RB-078676-15

PATIENT
  Sex: Male

DRUGS (3)
  1. MUCINEX [Suspect]
     Active Substance: GUAIFENESIN
     Indication: NASOPHARYNGITIS
     Route: 065
     Dates: start: 20150403
  2. NATUREMADE SAM-E 400 MG [Suspect]
     Active Substance: ADEMETIONINE
     Indication: SUPPLEMENTATION THERAPY
     Route: 065
     Dates: start: 201504
  3. NATUREMADE SAM-E 400 MG [Suspect]
     Active Substance: ADEMETIONINE
     Indication: DEPRESSION
     Route: 065
     Dates: start: 201504

REACTIONS (3)
  - Chest pain [Recovered/Resolved]
  - Palpitations [Recovered/Resolved]
  - Heart rate increased [Recovered/Resolved]

NARRATIVE: CASE EVENT DATE: 201504
